FAERS Safety Report 5807375-7 (Version None)
Quarter: 2008Q3

REPORT INFORMATION
  Report Type: 
  Country: None (occurrence: None)
  Receive Date: 20080711
  Receipt Date: 20080709
  Transmission Date: 20090109
  Serious: Yes (Other)
  Sender: FDA-Public Use
  Company Number: GB-JNJFOC-20080504190

PATIENT
  Sex: Male
  Weight: 66.67 kg

DRUGS (7)
  1. REMINYL XR [Suspect]
     Route: 048
  2. REMINYL XR [Suspect]
     Route: 048
  3. REMINYL XR [Suspect]
     Indication: DEMENTIA ALZHEIMER'S TYPE
     Route: 048
  4. RANITIDINE HCL [Concomitant]
  5. XATRAL [Concomitant]
  6. ASPIRIN [Concomitant]
  7. AVODART [Concomitant]

REACTIONS (3)
  - ACCIDENTAL OVERDOSE [None]
  - CONFUSIONAL STATE [None]
  - MEDICATION ERROR [None]
